FAERS Safety Report 5737288-0 (Version None)
Quarter: 2008Q2

REPORT INFORMATION
  Report Type: 
  Country: None (occurrence: None)
  Receive Date: 20080512
  Receipt Date: 20080512
  Transmission Date: 20081010
  Serious: No
  Sender: FDA-Public Use
  Company Number: None

PATIENT
  Sex: Female
  Weight: 59.8748 kg

DRUGS (2)
  1. PROAIR HFA INHALATION AEROSOL 90 MCG IVAX PHARMACEUTICALS [Suspect]
     Indication: CHRONIC OBSTRUCTIVE PULMONARY DISEASE
     Dosage: 2 PUFFS AS NEEDED PO
     Route: 048
     Dates: start: 20070817, end: 20070917
  2. PROAIR HFA INHALATION AEROSOL 90 MCG IVAX PHARMACEUTICALS [Suspect]
     Indication: LUNG NEOPLASM MALIGNANT
     Dosage: 2 PUFFS AS NEEDED PO
     Route: 048
     Dates: start: 20070817, end: 20070917

REACTIONS (2)
  - DRUG INEFFECTIVE [None]
  - PHARMACEUTICAL PRODUCT COMPLAINT [None]
